FAERS Safety Report 5549672-9 (Version None)
Quarter: 2007Q4

REPORT INFORMATION
  Report Type: 
  Country: None (occurrence: None)
  Receive Date: 20071210
  Receipt Date: 20071120
  Transmission Date: 20080405
  Serious: Yes (Death)
  Sender: FDA-Public Use
  Company Number: THYR-10495

PATIENT
  Age: 82 Year
  Sex: Female

DRUGS (1)
  1. THYROGEN [Suspect]
     Indication: METASTASIS
     Dosage: MG ONCE IM
     Route: 030
     Dates: start: 20020101

REACTIONS (4)
  - CARDIAC FAILURE CONGESTIVE [None]
  - NEOPLASM PROGRESSION [None]
  - RESPIRATORY FAILURE [None]
  - THYROID CANCER [None]
